FAERS Safety Report 9962597 (Version 2)
Quarter: 2014Q1

REPORT INFORMATION
  Report Type: Report from Study
  Country: US (occurrence: US)
  Receive Date: 20140305
  Receipt Date: 20140305
  Transmission Date: 20141002
  Serious: Yes (Other)
  Sender: FDA-Public Use
  Company Number: US-ABBVIE-13P-163-1084657-00

PATIENT
  Age: 43 Year
  Sex: Female
  Weight: 90.8 kg

DRUGS (3)
  1. HUMIRA [Suspect]
     Indication: PSORIASIS
     Dates: start: 20130321, end: 20130321
  2. HUMIRA [Suspect]
     Indication: PSORIATIC ARTHROPATHY
     Dates: start: 20130328
  3. DOVONEX [Concomitant]
     Indication: PSORIASIS

REACTIONS (5)
  - Road traffic accident [Recovering/Resolving]
  - Tibia fracture [Not Recovered/Not Resolved]
  - Ankle fracture [Recovering/Resolving]
  - Fibula fracture [Recovering/Resolving]
  - Injection site erythema [Not Recovered/Not Resolved]
